FAERS Safety Report 8368209-2 (Version None)
Quarter: 2012Q2

REPORT INFORMATION
  Report Type: 
  Country: None (occurrence: None)
  Receive Date: 20120517
  Receipt Date: 20120508
  Transmission Date: 20120825
  Serious: Yes (Congenital Anomaly, Other)
  Sender: FDA-Public Use
  Company Number: PHHY2012DE039659

PATIENT

DRUGS (6)
  1. NAPROXEN [Suspect]
     Route: 064
  2. VALACICLOVIR [Suspect]
     Route: 064
  3. ABATACEPT [Suspect]
     Route: 064
  4. PREDNISOLONE [Suspect]
     Route: 064
  5. MYFORTIC [Suspect]
     Dosage: (MATERNAL DOSE: 1.44 G/DAY)
     Route: 064
  6. COLCHICINE [Suspect]
     Route: 064

REACTIONS (4)
  - BRAIN MALFORMATION [None]
  - PREMATURE BABY [None]
  - FOETAL EXPOSURE DURING PREGNANCY [None]
  - MENINGOCELE [None]
